FAERS Safety Report 6849149-4 (Version None)
Quarter: 2010Q3

REPORT INFORMATION
  Report Type: 
  Country: None (occurrence: None)
  Receive Date: 20100716
  Receipt Date: 20100705
  Transmission Date: 20110219
  Serious: No
  Sender: FDA-Public Use
  Company Number: B0635299A

PATIENT
  Sex: Female

DRUGS (4)
  1. RELENZA [Suspect]
     Indication: INFLUENZA
     Dosage: 20MG PER DAY
     Route: 055
     Dates: start: 20100110, end: 20100114
  2. CALONAL [Concomitant]
     Indication: HEADACHE
     Dosage: 2IUAX PER DAY
     Route: 048
     Dates: start: 20090815
  3. NIZORAL [Concomitant]
     Dosage: .5G PER DAY
     Route: 061
     Dates: start: 20091225
  4. DUVADILAN [Concomitant]
     Dosage: 3IUAX PER DAY
     Route: 048
     Dates: start: 20100406, end: 20100529

REACTIONS (2)
  - DELIVERY [None]
  - DRUG EXPOSURE DURING PREGNANCY [None]
